FAERS Safety Report 7581105-3 (Version None)
Quarter: 2011Q2

REPORT INFORMATION
  Report Type: 
  Country: None (occurrence: None)
  Receive Date: 20110610
  Receipt Date: 20110602
  Transmission Date: 20111010
  Serious: Yes (Other)
  Sender: FDA-Public Use
  Company Number: 2011028797

PATIENT
  Age: 60 Year
  Sex: Female
  Weight: 106.5953 kg

DRUGS (30)
  1. LASIX [Concomitant]
  2. SYNTHROID [Concomitant]
  3. ATENOLOL [Concomitant]
  4. NORTRIPTYLINE (NORTRIPTULINE) [Concomitant]
  5. TRAMADOL HCL [Concomitant]
  6. ISOSORBIDE (ISOSORBIDE) [Concomitant]
  7. HIZENTRA [Suspect]
     Indication: IMMUNODEFICIENCY COMMON VARIABLE
     Dosage: 10 G 1 X/WEEK,10 G (50 ML) WEEKLY VIA 3 SITES OVER 1 HOUR 13 MINUTES, SUBCUTANEOUS
     Route: 058
     Dates: start: 20110511
  8. HIZENTRA [Suspect]
     Indication: HYPOGAMMAGLOBULINAEMIA
     Dosage: 10 G 1 X/WEEK,10 G (50 ML) WEEKLY VIA 3 SITES OVER 1 HOUR 13 MINUTES, SUBCUTANEOUS
     Route: 058
     Dates: start: 20110511
  9. HIZENTRA [Suspect]
     Indication: SELECTIVE IGA IMMUNODEFICIENCY
     Dosage: 10 G 1 X/WEEK,10 G (50 ML) WEEKLY VIA 3 SITES OVER 1 HOUR 13 MINUTES, SUBCUTANEOUS
     Route: 058
     Dates: start: 20110511
  10. HIZENTRA [Suspect]
     Indication: IMMUNODEFICIENCY
     Dosage: 10 G 1 X/WEEK,10 G (50 ML) WEEKLY VIA 3 SITES OVER 1 HOUR 13 MINUTES, SUBCUTANEOUS
     Route: 058
     Dates: start: 20110511
  11. HIZENTRA [Suspect]
     Indication: IMMUNODEFICIENCY COMMON VARIABLE
     Dosage: 10 G 1 X/WEEK,10 G (50 ML) WEEKLY VIA 3 SITES OVER 1 HOUR 13 MINUTES, SUBCUTANEOUS
     Route: 058
     Dates: start: 20110511
  12. HIZENTRA [Suspect]
     Indication: HYPOGAMMAGLOBULINAEMIA
     Dosage: 10 G 1 X/WEEK,10 G (50 ML) WEEKLY VIA 3 SITES OVER 1 HOUR 13 MINUTES, SUBCUTANEOUS
     Route: 058
     Dates: start: 20110511
  13. HIZENTRA [Suspect]
     Indication: SELECTIVE IGA IMMUNODEFICIENCY
     Dosage: 10 G 1 X/WEEK,10 G (50 ML) WEEKLY VIA 3 SITES OVER 1 HOUR 13 MINUTES, SUBCUTANEOUS
     Route: 058
     Dates: start: 20110511
  14. HIZENTRA [Suspect]
     Indication: IMMUNODEFICIENCY
     Dosage: 10 G 1 X/WEEK,10 G (50 ML) WEEKLY VIA 3 SITES OVER 1 HOUR 13 MINUTES, SUBCUTANEOUS
     Route: 058
     Dates: start: 20110511
  15. HIZENTRA [Suspect]
     Indication: IMMUNODEFICIENCY COMMON VARIABLE
     Dosage: 10 G 1 X/WEEK,10 G (50 ML) WEEKLY VIA 3 SITES OVER 1 HOUR 13 MINUTES, SUBCUTANEOUS
     Route: 058
     Dates: start: 20110511
  16. HIZENTRA [Suspect]
     Indication: HYPOGAMMAGLOBULINAEMIA
     Dosage: 10 G 1 X/WEEK,10 G (50 ML) WEEKLY VIA 3 SITES OVER 1 HOUR 13 MINUTES, SUBCUTANEOUS
     Route: 058
     Dates: start: 20110511
  17. HIZENTRA [Suspect]
     Indication: SELECTIVE IGA IMMUNODEFICIENCY
     Dosage: 10 G 1 X/WEEK,10 G (50 ML) WEEKLY VIA 3 SITES OVER 1 HOUR 13 MINUTES, SUBCUTANEOUS
     Route: 058
     Dates: start: 20110511
  18. HIZENTRA [Suspect]
     Indication: IMMUNODEFICIENCY
     Dosage: 10 G 1 X/WEEK,10 G (50 ML) WEEKLY VIA 3 SITES OVER 1 HOUR 13 MINUTES, SUBCUTANEOUS
     Route: 058
     Dates: start: 20110511
  19. CLOBETASOL (CLOBETASOL) [Concomitant]
  20. ADVAIR HFA [Concomitant]
  21. DUONEB [Concomitant]
  22. GABAPENTIN [Concomitant]
  23. FLONASE [Concomitant]
  24. PRAVASTATIN [Concomitant]
  25. HIZENTRA [Suspect]
  26. AMARYL [Concomitant]
  27. SORIATANE [Concomitant]
  28. ESTRADIOL [Concomitant]
  29. RESTASIS [Concomitant]
  30. CLARITIN [Concomitant]

REACTIONS (2)
  - UPPER RESPIRATORY TRACT INFECTION [None]
  - SINUSITIS [None]
